FAERS Safety Report 13412804 (Version 2)
Quarter: 2017Q4

REPORT INFORMATION
  Report Type: Spontaneous
  Country: US (occurrence: US)
  Receive Date: 20170406
  Receipt Date: 20171123
  Transmission Date: 20180320
  Serious: No
  Sender: FDA-Public Use
  Company Number: US-JNJFOC-20170308541

PATIENT
  Age: 26 Year
  Sex: Male

DRUGS (6)
  1. RISPERDAL [Suspect]
     Active Substance: RISPERIDONE
     Indication: CONDUCT DISORDER
     Route: 048
     Dates: start: 20100316, end: 20151205
  2. RISPERDAL [Suspect]
     Active Substance: RISPERIDONE
     Indication: CONDUCT DISORDER
     Route: 048
     Dates: start: 20060719, end: 20060930
  3. RISPERIDONE. [Suspect]
     Active Substance: RISPERIDONE
     Indication: CONDUCT DISORDER
     Dosage: IN VARYING DOSES OF 1 MG, 2 MG AND 3 MG
     Route: 065
     Dates: start: 20100316, end: 20151205
  4. RISPERIDONE M-TAB [Suspect]
     Active Substance: RISPERIDONE
     Indication: CONDUCT DISORDER
     Dosage: IN VARYING DOSES OF 2 MG AND 3 MG
     Route: 048
     Dates: start: 20151020, end: 20151224
  5. INVEGA [Suspect]
     Active Substance: PALIPERIDONE
     Indication: CONDUCT DISORDER
     Route: 048
     Dates: start: 20160128
  6. INVEGA [Suspect]
     Active Substance: PALIPERIDONE
     Indication: CONDUCT DISORDER
     Route: 048
     Dates: start: 20160126, end: 201601

REACTIONS (4)
  - Product use in unapproved indication [Unknown]
  - Gynaecomastia [Unknown]
  - Off label use [Unknown]
  - Emotional disorder [Unknown]

NARRATIVE: CASE EVENT DATE: 20160126
